FAERS Safety Report 24615122 (Version 41)
Quarter: 2025Q4

REPORT INFORMATION
  Report Type: Spontaneous
  Country: CA (occurrence: CA)
  Receive Date: 20241113
  Receipt Date: 20251113
  Transmission Date: 20260118
  Serious: Yes (Other)
  Sender: ASTELLAS
  Company Number: CA-PFIZER INC-PV202400145687

PATIENT
  Age: 67 Year
  Sex: Male
  Weight: 114 kg

DRUGS (36)
  1. PADCEV [Suspect]
     Active Substance: ENFORTUMAB VEDOTIN-EJFV
     Indication: Transitional cell carcinoma
     Dosage: 125 MG; POWDER FOR SOLUTION FOR INFUSION
     Route: 042
     Dates: start: 20241106
  2. PADCEV [Suspect]
     Active Substance: ENFORTUMAB VEDOTIN-EJFV
     Dosage: 125 MG, POWDER FOR SOLUTION FOR INFUSION
     Route: 042
  3. PADCEV [Suspect]
     Active Substance: ENFORTUMAB VEDOTIN-EJFV
     Dosage: 125 MG, CYCLIC, DAY1 + 8?POWDER FOR SOLUTION FOR INFUSION
     Route: 042
     Dates: start: 20241112
  4. PADCEV [Suspect]
     Active Substance: ENFORTUMAB VEDOTIN-EJFV
     Dosage: DAY1 + 8?POWDER FOR SOLUTION FOR INFUSION
     Route: 042
     Dates: start: 20241126
  5. PADCEV [Suspect]
     Active Substance: ENFORTUMAB VEDOTIN-EJFV
     Dosage: DAY1 + 8?POWDER FOR SOLUTION FOR INFUSION
     Route: 042
     Dates: start: 20241203
  6. PADCEV [Suspect]
     Active Substance: ENFORTUMAB VEDOTIN-EJFV
     Dosage: D1 AND D8 OF 21 DAY?POWDER FOR SOLUTION FOR INFUSION
     Route: 042
     Dates: start: 20241217
  7. PADCEV [Suspect]
     Active Substance: ENFORTUMAB VEDOTIN-EJFV
     Dosage: D1 AND D8 OF 21 DAY?POWDER FOR SOLUTION FOR INFUSION
     Route: 042
     Dates: start: 20241224
  8. PADCEV [Suspect]
     Active Substance: ENFORTUMAB VEDOTIN-EJFV
     Dosage: D1 AND D8 CYCLE: 4?POWDER FOR SOLUTION FOR INFUSION
     Route: 042
     Dates: start: 20250107
  9. PADCEV [Suspect]
     Active Substance: ENFORTUMAB VEDOTIN-EJFV
     Dosage: DAY 1 AND 8 (IT IS SUPPOSED TO BE=108 MG AS PER ATI 1MG/KG)?POWDER FOR SOLUTION FOR INFUSION
     Route: 042
     Dates: start: 20250114
  10. PADCEV [Suspect]
     Active Substance: ENFORTUMAB VEDOTIN-EJFV
     Dosage: DAY 1 AND 8 (IT IS SUPPOSED TO BE=108 MG AS PER ATI 1MG/KG)?POWDER FOR SOLUTION FOR INFUSION
     Route: 042
     Dates: start: 20250128, end: 20250128
  11. PADCEV [Suspect]
     Active Substance: ENFORTUMAB VEDOTIN-EJFV
     Dosage: DAY1 + DAY8?POWDER FOR SOLUTION FOR INFUSION
     Route: 042
     Dates: start: 20250204, end: 20250204
  12. PADCEV [Suspect]
     Active Substance: ENFORTUMAB VEDOTIN-EJFV
     Dosage: D1 + D8 OF 21 DAY CYCLE?POWDER FOR SOLUTION FOR INFUSION
     Route: 042
     Dates: start: 20250218, end: 20250218
  13. PADCEV [Suspect]
     Active Substance: ENFORTUMAB VEDOTIN-EJFV
     Dosage: D1 + D8 OF 21 DAY CYCLE?POWDER FOR SOLUTION FOR INFUSION
     Route: 042
     Dates: start: 20250225, end: 20250225
  14. PADCEV [Suspect]
     Active Substance: ENFORTUMAB VEDOTIN-EJFV
     Dosage: D1 + D8 OF 21 DAY CYCLE?POWDER FOR SOLUTION FOR INFUSION
     Route: 042
     Dates: start: 20250311
  15. PADCEV [Suspect]
     Active Substance: ENFORTUMAB VEDOTIN-EJFV
     Dosage: D1 AND D8 OF 21 DAY?POWDER FOR SOLUTION FOR INFUSION
     Route: 042
     Dates: start: 20250318
  16. PADCEV [Suspect]
     Active Substance: ENFORTUMAB VEDOTIN-EJFV
     Dosage: DAY 1 AND 8 (CYCLIC)?POWDER FOR SOLUTION FOR INFUSION
     Route: 042
     Dates: start: 20250401
  17. PADCEV [Suspect]
     Active Substance: ENFORTUMAB VEDOTIN-EJFV
     Dosage: DAY 1 AND 8 (CYCLIC)?POWDER FOR SOLUTION FOR INFUSION
     Route: 042
     Dates: start: 20250408
  18. PADCEV [Suspect]
     Active Substance: ENFORTUMAB VEDOTIN-EJFV
     Dosage: DAY 1 AND 8 (CYCLIC)?POWDER FOR SOLUTION FOR INFUSION
     Route: 042
     Dates: start: 20250422
  19. PADCEV [Suspect]
     Active Substance: ENFORTUMAB VEDOTIN-EJFV
     Dosage: DAY 1 AND 8 (CYCLIC)?POWDER FOR SOLUTION FOR INFUSION
     Route: 042
     Dates: start: 20250429
  20. PADCEV [Suspect]
     Active Substance: ENFORTUMAB VEDOTIN-EJFV
     Dosage: DAY 1 AND DAY 8 OF 21-DAY CYCLE?POWDER FOR SOLUTION FOR INFUSION
     Route: 042
     Dates: start: 20250513
  21. PADCEV [Suspect]
     Active Substance: ENFORTUMAB VEDOTIN-EJFV
     Dosage: DAY 1 AND DAY 8 OF 21-DAY CYCLE?POWDER FOR SOLUTION FOR INFUSION
     Route: 042
     Dates: start: 20250520
  22. PADCEV [Suspect]
     Active Substance: ENFORTUMAB VEDOTIN-EJFV
     Dosage: DAY 1 AND DAY 8 OF 21-DAY CYCLE?POWDER FOR SOLUTION FOR INFUSION
     Route: 042
     Dates: start: 20250603
  23. PADCEV [Suspect]
     Active Substance: ENFORTUMAB VEDOTIN-EJFV
     Dosage: DAY 1 AND DAY 8 OF 21-DAY CYCLE?POWDER FOR SOLUTION FOR INFUSION
     Route: 042
     Dates: start: 20250610
  24. PADCEV [Suspect]
     Active Substance: ENFORTUMAB VEDOTIN-EJFV
     Dosage: DAY 1 AND DAY 8 OF 21-DAY CYCLE?POWDER FOR SOLUTION FOR INFUSION
     Route: 042
     Dates: start: 20250624
  25. PADCEV [Suspect]
     Active Substance: ENFORTUMAB VEDOTIN-EJFV
     Dosage: FREQUENCY DAY 1 AND DAY 8 OF 21-DAY CYCLE?POWDER FOR SOLUTION FOR INFUSION
     Route: 042
     Dates: start: 20250630
  26. PADCEV [Suspect]
     Active Substance: ENFORTUMAB VEDOTIN-EJFV
     Dosage: FREQUENCY DAY 1 AND DAY 8 OF 21-DAY CYCLE?POWDER FOR SOLUTION FOR INFUSION
     Route: 042
     Dates: start: 20250715
  27. PADCEV [Suspect]
     Active Substance: ENFORTUMAB VEDOTIN-EJFV
     Dosage: FREQUENCY DAY 1 AND DAY 8 OF 21-DAY CYCLE?POWDER FOR SOLUTION FOR INFUSION
     Route: 042
     Dates: start: 20250722
  28. PADCEV [Suspect]
     Active Substance: ENFORTUMAB VEDOTIN-EJFV
     Dosage: FREQUENCY DAY 1 AND DAY 8 OF 21-DAY CYCLE?POWDER FOR SOLUTION FOR INFUSION
     Route: 042
     Dates: start: 20250805
  29. PADCEV [Suspect]
     Active Substance: ENFORTUMAB VEDOTIN-EJFV
     Dosage: FREQUENCY DAY 1 AND DAY 8 OF 21-DAY CYCLE?POWDER FOR SOLUTION FOR INFUSION
     Route: 042
     Dates: start: 20250826
  30. PADCEV [Suspect]
     Active Substance: ENFORTUMAB VEDOTIN-EJFV
     Dosage: FREQUENCY DAY 1 AND DAY 8 OF 21-DAY CYCLE?POWDER FOR SOLUTION FOR INFUSION
     Route: 042
     Dates: start: 20250902
  31. PADCEV [Suspect]
     Active Substance: ENFORTUMAB VEDOTIN-EJFV
     Dosage: FREQUENCY DAY 1 AND DAY 8 OF 21-DAY CYCLE?POWDER FOR SOLUTION FOR INFUSION
     Route: 042
     Dates: start: 20250916
  32. PADCEV [Suspect]
     Active Substance: ENFORTUMAB VEDOTIN-EJFV
     Dosage: 75 MG DAY 1 AND DAY 8 OF 21-DAY CYCLE?POWDER FOR SOLUTION FOR INFUSION
     Route: 042
     Dates: start: 20250930
  33. KEYTRUDA [Concomitant]
     Active Substance: PEMBROLIZUMAB
     Indication: Neoplasm malignant
     Dosage: 200 MG, EVERY 3 WEEKS
     Route: 042
  34. PRAVASTATIN SODIUM [Concomitant]
     Active Substance: PRAVASTATIN SODIUM
     Indication: Product used for unknown indication
     Dosage: UNK
     Route: 065
  35. GABAPENTIN [Concomitant]
     Active Substance: GABAPENTIN
     Indication: Product used for unknown indication
     Dosage: UNK
     Route: 065
  36. RAMIPRIL [Concomitant]
     Active Substance: RAMIPRIL
     Indication: Hypertension
     Dosage: 10 MG, DAILY
     Route: 065

REACTIONS (44)
  - Hypertension [Recovered/Resolved with Sequelae]
  - Weight decreased [Recovered/Resolved]
  - Mental impairment [Not Recovered/Not Resolved]
  - Metastases to lung [Not Recovered/Not Resolved]
  - Weight increased [Unknown]
  - Neuropathy peripheral [Not Recovered/Not Resolved]
  - Hypoaesthesia [Not Recovered/Not Resolved]
  - Pruritus [Recovered/Resolved]
  - Fatigue [Not Recovered/Not Resolved]
  - Arthralgia [Recovering/Resolving]
  - Dry eye [Recovering/Resolving]
  - Visual impairment [Recovered/Resolved]
  - Eye irritation [Recovered/Resolved]
  - Diarrhoea [Recovered/Resolved]
  - Rash macular [Recovering/Resolving]
  - Blister [Recovered/Resolved]
  - Ageusia [Recovered/Resolved]
  - Pain [Not Recovered/Not Resolved]
  - Rhinorrhoea [Recovering/Resolving]
  - Erythema [Recovering/Resolving]
  - Nasal congestion [Unknown]
  - Productive cough [Unknown]
  - Blood creatine phosphokinase increased [Recovered/Resolved]
  - Peripheral swelling [Recovered/Resolved with Sequelae]
  - Skin discolouration [Unknown]
  - Rash [Recovering/Resolving]
  - Seasonal allergy [Recovered/Resolved]
  - Arthritis [Recovered/Resolved]
  - Infusion site pain [Recovered/Resolved]
  - Infusion site mass [Recovered/Resolved]
  - Mucosal inflammation [Unknown]
  - Pyrexia [Unknown]
  - Skin exfoliation [Unknown]
  - Oxygen saturation decreased [Unknown]
  - Alopecia [Recovered/Resolved]
  - Pain in extremity [Recovered/Resolved]
  - Fall [Recovered/Resolved]
  - Contusion [Recovered/Resolved]
  - Decreased appetite [Recovered/Resolved]
  - Dry mouth [Recovered/Resolved]
  - Back pain [Not Recovered/Not Resolved]
  - Dry mouth [Unknown]
  - Off label use [Unknown]
  - Dose calculation error [Unknown]

NARRATIVE: CASE EVENT DATE: 20240101
